FAERS Safety Report 10178292 (Version 2)
Quarter: 2014Q2

REPORT INFORMATION
  Report Type: Spontaneous
  Country: TR (occurrence: TR)
  Receive Date: 20140519
  Receipt Date: 20140519
  Transmission Date: 20141212
  Serious: Yes (Other)
  Sender: FDA-Public Use
  Company Number: TR-AMGEN INC.-TURSP2014021402

PATIENT
  Age: 66 Year
  Sex: Female
  Weight: 98 kg

DRUGS (1)
  1. ENBREL [Suspect]
     Indication: PSORIASIS
     Dosage: 50 MG, TWICE WEEKLY
     Route: 058
     Dates: start: 20120426

REACTIONS (3)
  - Pain [Not Recovered/Not Resolved]
  - Skin wound [Not Recovered/Not Resolved]
  - Anaemia [Recovered/Resolved]
